FAERS Safety Report 9411563 (Version 1)
Quarter: 2013Q3

REPORT INFORMATION
  Report Type: Spontaneous
  Country: US (occurrence: None)
  Receive Date: 20130718
  Receipt Date: 20130718
  Transmission Date: 20140515
  Serious: Yes (Hospitalization, Disabling, Other)
  Sender: FDA-Public Use
  Company Number: None

PATIENT
  Age: 26 Year
  Sex: Female
  Weight: 81.65 kg

DRUGS (1)
  1. TOPIRAMATE [Suspect]

REACTIONS (4)
  - Insomnia [None]
  - Dysmenorrhoea [None]
  - Visual impairment [None]
  - Chest pain [None]
